FAERS Safety Report 12572547 (Version 1)
Quarter: 2020Q3

REPORT INFORMATION
  Report Type: Spontaneous
  Country: GB (occurrence: GB)
  Receive Date: 20160720
  Receipt Date: 20160720
  Transmission Date: 20201105
  Serious: Yes (Other)
  Sender: FDA-Public Use
  Company Number: GB-ROCHE-1797132

PATIENT
  Age: 79 Year
  Sex: Female
  Weight: 58 kg

DRUGS (24)
  1. CO?AMOXICLAV [Concomitant]
     Active Substance: AMOXICILLIN\CLAVULANATE POTASSIUM
     Dosage: ANTIBIOTIC IN RESERVE
     Route: 065
     Dates: start: 20120801
  2. NUTRITIONAL SUPPLEMENT [Concomitant]
     Active Substance: DIETARY SUPPLEMENT
     Dosage: ALL EXCEPT CHOCOLATE, COMPLAN SHAKE.
     Route: 065
     Dates: start: 20160120
  3. TERBUTALINE [Concomitant]
     Active Substance: TERBUTALINE
     Dosage: UP TO FOUR TIMES A DAY
     Route: 055
     Dates: start: 20120801
  4. BECLOMETASONE [Concomitant]
     Active Substance: BECLOMETHASONE DIPROPIONATE
     Dosage: ONE TO TWO SPRAYS INTO EACH NOSTRIL
     Route: 045
     Dates: start: 20130501
  5. DOMPERIDONE [Concomitant]
     Active Substance: DOMPERIDONE
     Indication: MALAISE
     Route: 065
     Dates: start: 20160706
  6. LANSOPRAZOL [Concomitant]
     Active Substance: LANSOPRAZOLE
     Dosage: BEFORE BREAKFAST
     Route: 065
     Dates: start: 20150225
  7. FORMOTEROL FUMARATE [Concomitant]
     Active Substance: FORMOTEROL FUMARATE
     Dosage: INCREASE TO 2 DOSES..
     Route: 055
     Dates: start: 20141203
  8. QUININE [Concomitant]
     Active Substance: QUININE
     Indication: MUSCLE SPASMS
     Dosage: AT BEDTIME
     Route: 065
     Dates: start: 20120801
  9. SYMBICORT [Concomitant]
     Active Substance: BUDESONIDE\FORMOTEROL FUMARATE DIHYDRATE
     Route: 055
     Dates: start: 20120801
  10. CALCIUM CARBONATE. [Concomitant]
     Active Substance: CALCIUM CARBONATE
     Dosage: DRUG REPORTED AS ADCAL
     Route: 065
     Dates: start: 20120801
  11. CETIRIZINE [Concomitant]
     Active Substance: CETIRIZINE HYDROCHLORIDE
     Indication: SEASONAL ALLERGY
     Dosage: ONE DAILY OR TWICE A DAY
     Route: 065
     Dates: start: 20130626
  12. LAXIDO [Concomitant]
     Active Substance: POLYETHYLENE GLYCOL 3350\POTASSIUM CHLORIDE\SODIUM BICARBONATE\SODIUM CHLORIDE
     Dosage: AFTER MEALS FOR BOWELS
     Route: 065
     Dates: start: 20151125
  13. TIOTROPIUM [Concomitant]
     Active Substance: TIOTROPIUM
     Route: 065
     Dates: start: 20140723
  14. IBANDRONIC ACID. [Suspect]
     Active Substance: IBANDRONIC ACID
     Indication: PRODUCT USED FOR UNKNOWN INDICATION
     Route: 065
     Dates: start: 20120801
  15. ERYTHROMYCIN. [Concomitant]
     Active Substance: ERYTHROMYCIN
     Dosage: LONG TERM
     Route: 065
     Dates: start: 20120801
  16. OXYCODONE HYDROCHLORIDE. [Concomitant]
     Active Substance: OXYCODONE HYDROCHLORIDE
     Dosage: AS DIRECTED BY HOSPITAL
     Route: 065
     Dates: start: 20160609
  17. COCODAMOL [Concomitant]
     Active Substance: ACETAMINOPHEN\CODEINE PHOSPHATE
     Dosage: ONE TO TWO FOUR TIMES DAILY
     Route: 065
     Dates: start: 20120801
  18. DIETHYLAMINE SALICYLATE [Concomitant]
     Active Substance: DIETHYLAMINE SALICYLATE
     Route: 061
     Dates: start: 20160706
  19. BUTRANS [Concomitant]
     Active Substance: BUPRENORPHINE
     Dosage: REPLACE EVERY 7 DAYS AS DIRECTED
     Route: 065
     Dates: start: 20160511, end: 20160609
  20. MOVELAT (UNITED KINGDOM) [Concomitant]
     Dosage: MASSAGE INTO AFFECTED AREA UP TO 4 TIMES A DAY
     Route: 061
     Dates: start: 20151027
  21. UNIPHYLLIN [Concomitant]
     Active Substance: THEOPHYLLINE ANHYDROUS
     Route: 065
     Dates: start: 20141127
  22. MUCODYNE [Concomitant]
     Active Substance: CARBOCYSTEINE
     Indication: PRODUCTIVE COUGH
     Dosage: TWICE OR THREE TIMES A DAY
     Route: 065
     Dates: start: 20141203
  23. NEDOCROMIL SODIUM. [Concomitant]
     Active Substance: NEDOCROMIL SODIUM
     Indication: HYPERSENSITIVITY
     Route: 065
     Dates: start: 20150324, end: 20160429
  24. PREDNISOLONE. [Concomitant]
     Active Substance: PREDNISOLONE
     Indication: ASTHMA
     Dosage: FOR 2 WEEKS
     Route: 065
     Dates: start: 20120801

REACTIONS (1)
  - Osteoporosis [Recovered/Resolved with Sequelae]

NARRATIVE: CASE EVENT DATE: 20160708
